FAERS Safety Report 8415740-7 (Version None)
Quarter: 2012Q2

REPORT INFORMATION
  Report Type: 
  Country: None (occurrence: None)
  Receive Date: 20120606
  Receipt Date: 20120529
  Transmission Date: 20120825
  Serious: Yes (Other)
  Sender: FDA-Public Use
  Company Number: US-ASTELLAS-2012US005166

PATIENT
  Age: 78 Year
  Sex: Female
  Weight: 75 kg

DRUGS (4)
  1. ERLOTINIB HYDROCHLORIDE [Suspect]
     Indication: NON-SMALL CELL LUNG CANCER
     Dosage: 150 MG, UID/QD
     Route: 048
     Dates: start: 20101001, end: 20110601
  2. FEMARA [Concomitant]
     Indication: BREAST CANCER
     Dosage: UNK
     Route: 048
  3. GEMZAR [Concomitant]
     Indication: NON-SMALL CELL LUNG CANCER
     Dosage: UNK
     Route: 042
  4. ERLOTINIB HYDROCHLORIDE [Suspect]
     Dosage: 75 MG, UID/QD
     Route: 048
     Dates: start: 20110601

REACTIONS (3)
  - CHEST DISCOMFORT [None]
  - SKIN ULCER [None]
  - COUGH [None]
